FAERS Safety Report 14599694 (Version 2)
Quarter: 2018Q1

REPORT INFORMATION
  Report Type: Spontaneous
  Country: ES (occurrence: ES)
  Receive Date: 20180305
  Receipt Date: 20180323
  Transmission Date: 20180509
  Serious: Yes (Other)
  Sender: FDA-Public Use
  Company Number: ES-MYLANLABS-2018M1015124

PATIENT
  Sex: Female

DRUGS (4)
  1. FRUSEMIDE [Suspect]
     Active Substance: FUROSEMIDE
     Indication: PRODUCT USED FOR UNKNOWN INDICATION
     Route: 064
  2. CINACALCET HYDROCHLORIDE [Suspect]
     Active Substance: CINACALCET HYDROCHLORIDE
     Indication: PRODUCT USED FOR UNKNOWN INDICATION
     Route: 064
  3. CALCITONIN SALMON. [Suspect]
     Active Substance: CALCITONIN SALMON
     Indication: HYPERCALCAEMIA
     Route: 064
  4. BETAMETHASONE. [Suspect]
     Active Substance: BETAMETHASONE
     Indication: PRODUCT USED FOR UNKNOWN INDICATION
     Route: 064

REACTIONS (8)
  - Foetal exposure during pregnancy [Unknown]
  - Foetal heart rate abnormal [Unknown]
  - Low birth weight baby [Unknown]
  - Bilirubin conjugated increased [Unknown]
  - Foetal growth restriction [Unknown]
  - Neonatal hypocalcaemia [Recovered/Resolved]
  - Jaundice neonatal [Recovered/Resolved]
  - Neonatal cholestasis [Recovered/Resolved]
